FAERS Safety Report 18397891 (Version 1)
Quarter: 2020Q4

REPORT INFORMATION
  Report Type: Spontaneous
  Country: JP (occurrence: JP)
  Receive Date: 20201019
  Receipt Date: 20201019
  Transmission Date: 20210114
  Serious: Yes (Other)
  Sender: FDA-Public Use
  Company Number: JP-GLAXOSMITHKLINE-JP2020203465

PATIENT
  Age: 72 Year
  Sex: Female

DRUGS (1)
  1. ALLERMIST [Suspect]
     Active Substance: FLUTICASONE FUROATE
     Indication: UPPER-AIRWAY COUGH SYNDROME
     Dosage: UNK, QD
     Route: 045

REACTIONS (4)
  - Upper-airway cough syndrome [Unknown]
  - Renal salt-wasting syndrome [Unknown]
  - Product use in unapproved indication [Unknown]
  - Condition aggravated [Unknown]
